FAERS Safety Report 21993951 (Version 1)
Quarter: 2023Q1

REPORT INFORMATION
  Report Type: Report from Study
  Country: US (occurrence: US)
  Receive Date: 20230215
  Receipt Date: 20230215
  Transmission Date: 20230418
  Serious: Yes (Hospitalization, Other)
  Sender: FDA-Public Use
  Company Number: US-ABBVIE-4305990

PATIENT
  Age: 69 Year
  Sex: Female
  Weight: 75.749 kg

DRUGS (2)
  1. CREON [Suspect]
     Active Substance: PANCRELIPASE AMYLASE\PANCRELIPASE LIPASE\PANCRELIPASE PROTEASE
     Indication: Pancreatic carcinoma stage IV
     Dosage: TIME INTERVAL: 0.33333333 DAYS: FREQUENCY TEXT: 2 WITH MEALS, 1 WITH SNACKS?FIRST ADMIN DATE: 09 ...
     Route: 048
  2. CLARITIN [Concomitant]
     Active Substance: LORATADINE
     Indication: Sinus disorder

REACTIONS (11)
  - Urinary incontinence [Recovered/Resolved]
  - Platelet count decreased [Recovering/Resolving]
  - Systemic infection [Recovered/Resolved]
  - Red blood cell count decreased [Recovering/Resolving]
  - Haemoglobin decreased [Recovering/Resolving]
  - Anal incontinence [Recovered/Resolved]
  - White blood cell count decreased [Recovering/Resolving]
  - Haematocrit decreased [Recovering/Resolving]
  - Blood magnesium increased [Recovering/Resolving]
  - Illness [Unknown]
  - Hospice care [Unknown]

NARRATIVE: CASE EVENT DATE: 20221201
